FAERS Safety Report 24058608 (Version 1)
Quarter: 2024Q3

REPORT INFORMATION
  Report Type: Report from Study
  Country: US (occurrence: US)
  Receive Date: 20240708
  Receipt Date: 20240708
  Transmission Date: 20241016
  Serious: Yes (Other)
  Sender: ABBVIE
  Company Number: US-ABBVIE-5830774

PATIENT
  Sex: Female

DRUGS (2)
  1. SYNTHROID [Suspect]
     Active Substance: LEVOTHYROXINE SODIUM
     Indication: Hypothyroidism
     Route: 048
     Dates: end: 20240615
  2. SYNTHROID [Suspect]
     Active Substance: LEVOTHYROXINE SODIUM
     Indication: Hypothyroidism
     Route: 048

REACTIONS (7)
  - Blindness unilateral [Recovering/Resolving]
  - Headache [Recovering/Resolving]
  - Palpitations [Recovering/Resolving]
  - Muscle spasms [Recovering/Resolving]
  - Diplopia [Recovering/Resolving]
  - Foot deformity [Recovering/Resolving]
  - Insomnia [Recovering/Resolving]
